FAERS Safety Report 5751397-1 (Version None)
Quarter: 2008Q2

REPORT INFORMATION
  Report Type: 
  Country: None (occurrence: None)
  Receive Date: 20080527
  Receipt Date: 20080516
  Transmission Date: 20081010
  Serious: Yes (Other)
  Sender: FDA-Public Use
  Company Number: 2008AP001222

PATIENT
  Age: 83 Year
  Sex: Male

DRUGS (9)
  1. SOTALOL HCL [Suspect]
     Indication: VENTRICULAR TACHYCARDIA
     Dosage: 40 MG;TID;PO : 80 MG;BID;PO
     Route: 048
     Dates: start: 20070323, end: 20080421
  2. SOTALOL HCL [Suspect]
     Indication: VENTRICULAR TACHYCARDIA
     Dosage: 40 MG;TID;PO : 80 MG;BID;PO
     Route: 048
     Dates: start: 20080422
  3. TOPROL-XL [Suspect]
     Indication: VENTRICULAR TACHYCARDIA
     Dates: start: 20030304
  4. SORINE [Suspect]
     Indication: VENTRICULAR TACHYCARDIA
  5. ASPIRIN [Concomitant]
  6. ATORVASTATIN [Concomitant]
  7. FINASTERIDE [Concomitant]
  8. MAGNESIUM [Concomitant]
  9. VITAMINS [Concomitant]

REACTIONS (6)
  - ASTHENIA [None]
  - DYSPNOEA [None]
  - ELECTROCARDIOGRAM QT PROLONGED [None]
  - GAIT DISTURBANCE [None]
  - MALAISE [None]
  - SYNCOPE [None]
